FAERS Safety Report 24575375 (Version 1)
Quarter: 2024Q4

REPORT INFORMATION
  Report Type: Spontaneous
  Country: BR (occurrence: BR)
  Receive Date: 20241104
  Receipt Date: 20241104
  Transmission Date: 20250114
  Serious: Yes (Other)
  Sender: BAYER HEALTHCARE PHARMACEUTICALS INC.
  Company Number: BR-BAYER-2024A153460

PATIENT
  Age: 54 Year
  Sex: Male

DRUGS (4)
  1. ADEMPAS [Suspect]
     Active Substance: RIOCIGUAT
     Indication: Pulmonary arterial hypertension
     Dosage: PATIENT TAKES 1 TABLET IN HALF OF 2.5 MG
     Dates: start: 2018
  2. ADEMPAS [Suspect]
     Active Substance: RIOCIGUAT
     Indication: Pulmonary hypertension
  3. XARELTO [Concomitant]
     Active Substance: RIVAROXABAN
     Indication: Thrombosis prophylaxis
     Dosage: UNK
     Dates: start: 2018
  4. DIPYRONE [Concomitant]
     Active Substance: DIPYRONE
     Indication: Headache
     Dosage: 1 G

REACTIONS (3)
  - Cardiac failure [None]
  - Headache [Unknown]
  - Wrong technique in product usage process [Unknown]
